FAERS Safety Report 9914194 (Version 1)
Quarter: 2014Q1

REPORT INFORMATION
  Report Type: Spontaneous
  Country: FR (occurrence: None)
  Receive Date: 20140218
  Receipt Date: 20140218
  Transmission Date: 20141002
  Serious: Yes (Other)
  Sender: FDA-Public Use
  Company Number: 2014HINLIT0104

PATIENT
  Age: 68 None
  Sex: Male

DRUGS (1)
  1. LITHIUM [Suspect]

REACTIONS (2)
  - Oncocytoma [None]
  - Renal cyst [None]
